FAERS Safety Report 12261235 (Version 1)
Quarter: 2016Q2

REPORT INFORMATION
  Report Type: Spontaneous
  Country: US (occurrence: US)
  Receive Date: 20160412
  Receipt Date: 20160412
  Transmission Date: 20160815
  Serious: No
  Sender: FDA-Public Use
  Company Number: US-INCYTE CORPORATION-2015IN006490

PATIENT
  Sex: Female

DRUGS (10)
  1. ULORIC [Concomitant]
     Active Substance: FEBUXOSTAT
  2. VITAMIN D                          /00107901/ [Concomitant]
     Active Substance: ERGOCALCIFEROL
  3. COUMADIN [Concomitant]
     Active Substance: WARFARIN SODIUM
  4. ATENOLOL. [Concomitant]
     Active Substance: ATENOLOL
  5. CALCIUM MAGNESIUM ZINC             /01320801/ [Concomitant]
  6. JAKAFI [Suspect]
     Active Substance: RUXOLITINIB
     Indication: MYELOFIBROSIS
     Dosage: 5 MG, BID
     Route: 048
     Dates: start: 201509
  7. POTASSIUM [Concomitant]
     Active Substance: POTASSIUM
  8. VITAMIN D3 [Concomitant]
     Active Substance: CHOLECALCIFEROL
  9. QUININE [Concomitant]
     Active Substance: QUININE
  10. OMEPRAZOLE. [Concomitant]
     Active Substance: OMEPRAZOLE

REACTIONS (2)
  - Decreased appetite [Unknown]
  - Splenomegaly [Unknown]

NARRATIVE: CASE EVENT DATE: 2015
